FAERS Safety Report 14700515 (Version 1)
Quarter: 2018Q1

REPORT INFORMATION
  Report Type: Spontaneous
  Country: US (occurrence: US)
  Receive Date: 20180330
  Receipt Date: 20180330
  Transmission Date: 20180509
  Serious: Yes (Disabling)
  Sender: FDA-Public Use
  Company Number: None

PATIENT
  Age: 65 Year
  Sex: Female
  Weight: 61.69 kg

DRUGS (15)
  1. LEVOTHYROXINE. [Concomitant]
     Active Substance: LEVOTHYROXINE
  2. PROBIOTICS [Concomitant]
     Active Substance: PROBIOTICS NOS
  3. VALACYCLOVIR TABLETS, USP, 1 GRAM [Suspect]
     Active Substance: VALACYCLOVIR HYDROCHLORIDE
     Indication: HERPES SIMPLEX
     Dosage: ?          QUANTITY:I 1 PILL;?PROBLEM ONGOING - NO EFFICACY
     Route: 048
  4. MELATONIN [Concomitant]
     Active Substance: MELATONIN
  5. MULTIVITAMIN [Concomitant]
     Active Substance: VITAMINS
  6. VALACYCLOVIR [Concomitant]
     Active Substance: VALACYCLOVIR HYDROCHLORIDE
  7. ASTAXANTHIN [Concomitant]
  8. VITAMIN E [Concomitant]
     Active Substance: .ALPHA.-TOCOPHEROL
  9. GLUTATHIONE REDUCED [Concomitant]
  10. P-5-P [Concomitant]
  11. CARBIDOPA-LEVODOPA [Concomitant]
     Active Substance: CARBIDOPA\LEVODOPA
  12. LYRICA [Concomitant]
     Active Substance: PREGABALIN
  13. METHYLCOBALAMIN. [Concomitant]
     Active Substance: METHYLCOBALAMIN
  14. VITAMIN D3 [Concomitant]
     Active Substance: CHOLECALCIFEROL
  15. PHOSPHATIDYL SERINE [Concomitant]
     Active Substance: PHOSPHATIDYL SERINE

REACTIONS (3)
  - Sweat gland disorder [None]
  - Drug ineffective [None]
  - Product substitution issue [None]

NARRATIVE: CASE EVENT DATE: 20180202
